FAERS Safety Report 5497062-X (Version None)
Quarter: 2007Q4

REPORT INFORMATION
  Report Type: 
  Country: None (occurrence: None)
  Receive Date: 20071018
  Receipt Date: 20060921
  Transmission Date: 20080405
  Serious: Yes (Other)
  Sender: FDA-Public Use
  Company Number: 2005070471

PATIENT
  Age: 42 Year
  Sex: Female
  Weight: 52.1637 kg

DRUGS (3)
  1. NEURONTIN [Suspect]
     Indication: PAIN
     Dosage: (300 MG), ORAL
     Route: 048
     Dates: start: 20050412
  2. NEURONTIN [Suspect]
     Indication: TRIGEMINAL NEURALGIA
     Dosage: (300 MG), ORAL
     Route: 048
     Dates: start: 20050412
  3. IBUPROFEN [Concomitant]

REACTIONS (4)
  - CATARACT SUBCAPSULAR [None]
  - FEELING ABNORMAL [None]
  - FEELING DRUNK [None]
  - WEIGHT INCREASED [None]
